FAERS Safety Report 7941990-X (Version None)
Quarter: 2011Q4

REPORT INFORMATION
  Report Type: 
  Country: None (occurrence: None)
  Receive Date: 20111122
  Receipt Date: 20111122
  Transmission Date: 20120403
  Serious: Yes (Hospitalization)
  Sender: FDA-Public Use
  Company Number: None

PATIENT
  Sex: Female
  Weight: 129.7 kg

DRUGS (1)
  1. PROLASTIN-C [Suspect]
     Indication: ALPHA-1 ANTI-TRYPSIN DEFICIENCY
     Dosage: 60MG/MG EVERY WEEK IV
     Route: 042
     Dates: start: 20091113

REACTIONS (4)
  - BLOOD DISORDER [None]
  - TREMOR [None]
  - INFECTION [None]
  - PYREXIA [None]
